FAERS Safety Report 9510532 (Version 1)
Quarter: 2013Q3

REPORT INFORMATION
  Report Type: Spontaneous
  Country: CN (occurrence: CN)
  Receive Date: 20130909
  Receipt Date: 20130909
  Transmission Date: 20140515
  Serious: Yes (Other)
  Sender: FDA-Public Use
  Company Number: PHHY2013CN098108

PATIENT
  Age: 58 Year
  Sex: Female

DRUGS (2)
  1. EXFORGE [Suspect]
     Indication: HYPERTENSION
     Dosage: 1 DF, A DAY
     Route: 048
     Dates: start: 201308
  2. LOTENSIN [Suspect]

REACTIONS (2)
  - Blood pressure increased [Unknown]
  - Oedema peripheral [Recovered/Resolved]
